FAERS Safety Report 5520608-X (Version None)
Quarter: 2007Q4

REPORT INFORMATION
  Report Type: 
  Country: None (occurrence: None)
  Receive Date: 20071119
  Receipt Date: 20071105
  Transmission Date: 20080405
  Serious: Yes (Other)
  Sender: FDA-Public Use
  Company Number: DE-PFIZER INC-2007088006

PATIENT
  Sex: Male

DRUGS (2)
  1. ZITHROMAX [Suspect]
     Indication: SINOBRONCHITIS
     Dosage: DAILY DOSE:5ML
     Route: 048
     Dates: start: 20071012, end: 20071014
  2. ZITHROMAX [Suspect]
     Indication: TRACHEITIS

REACTIONS (2)
  - JOINT SWELLING [None]
  - RASH [None]
